FAERS Safety Report 5265361-2 (Version None)
Quarter: 2007Q1

REPORT INFORMATION
  Report Type: 
  Country: None (occurrence: None)
  Receive Date: 20070314
  Receipt Date: 20070306
  Transmission Date: 20070707
  Serious: Yes (Hospitalization, Other)
  Sender: FDA-Public Use
  Company Number: US-PFIZER INC-2007002797

PATIENT
  Sex: Female
  Weight: 71.7 kg

DRUGS (2)
  1. BEXTRA [Suspect]
     Indication: ARTHRITIS
     Route: 048
  2. BEXTRA [Suspect]
     Indication: PAIN

REACTIONS (5)
  - CARDIOVASCULAR DISORDER [None]
  - DEPRESSION [None]
  - INSOMNIA [None]
  - ISCHAEMIC STROKE [None]
  - MYOCARDIAL INFARCTION [None]
